FAERS Safety Report 7288426-2 (Version None)
Quarter: 2011Q1

REPORT INFORMATION
  Report Type: 
  Country: None (occurrence: None)
  Receive Date: 20110211
  Receipt Date: 20110208
  Transmission Date: 20110831
  Serious: Yes (Hospitalization)
  Sender: FDA-Public Use
  Company Number: A0912513A

PATIENT
  Sex: Female

DRUGS (1)
  1. AVANDIA [Suspect]
     Route: 048

REACTIONS (11)
  - MYOCARDIAL INFARCTION [None]
  - CATHETERISATION CARDIAC [None]
  - SILENT MYOCARDIAL INFARCTION [None]
  - PAIN IN JAW [None]
  - HYPOAESTHESIA [None]
  - CARDIAC FAILURE CONGESTIVE [None]
  - CHEST PAIN [None]
  - PAIN IN EXTREMITY [None]
  - CEREBROVASCULAR ACCIDENT [None]
  - SENSORY DISTURBANCE [None]
  - OEDEMA PERIPHERAL [None]
